FAERS Safety Report 9056182 (Version 2)
Quarter: 2013Q1

REPORT INFORMATION
  Report Type: Spontaneous
  Country: SE (occurrence: SE)
  Receive Date: 20130205
  Receipt Date: 20130306
  Transmission Date: 20140127
  Serious: Yes (Hospitalization, Other)
  Sender: FDA-Public Use
  Company Number: SE-PFIZER INC-2008034686

PATIENT
  Age: 40 Year
  Sex: Female

DRUGS (1)
  1. CHLOROMYCETIN [Suspect]
     Indication: EYE INJURY
     Dosage: UNK
     Route: 047
     Dates: start: 19911003, end: 19911102

REACTIONS (11)
  - Meningitis [Unknown]
  - Visual impairment [Not Recovered/Not Resolved]
  - Hypertension [Not Recovered/Not Resolved]
  - General physical health deterioration [Not Recovered/Not Resolved]
  - Purulent discharge [Unknown]
  - Tonsillitis [Not Recovered/Not Resolved]
  - Sinusitis [Unknown]
  - Anaemia [Not Recovered/Not Resolved]
  - Platelet disorder [Not Recovered/Not Resolved]
  - Blood test abnormal [Not Recovered/Not Resolved]
  - Renal disorder [Not Recovered/Not Resolved]
